FAERS Safety Report 19104020 (Version 1)
Quarter: 2021Q2

REPORT INFORMATION
  Report Type: Spontaneous
  Country: US (occurrence: US)
  Receive Date: 20210407
  Receipt Date: 20210407
  Transmission Date: 20210717
  Serious: No
  Sender: FDA-Public Use
  Company Number: US-MATRIXX INITIATIVES, INC.-2109017

PATIENT
  Age: 23 Year
  Sex: Female
  Weight: 77.27 kg

DRUGS (1)
  1. ZICAM INTENSE SINUS RELIEF [Suspect]
     Active Substance: OXYMETAZOLINE HYDROCHLORIDE
     Indication: NASAL CONGESTION
     Route: 045
     Dates: start: 20210404, end: 20210404

REACTIONS (2)
  - Anosmia [None]
  - Dysgeusia [None]
